FAERS Safety Report 19299440 (Version 3)
Quarter: 2022Q3

REPORT INFORMATION
  Report Type: Spontaneous
  Country: ES (occurrence: ES)
  Receive Date: 20210524
  Receipt Date: 20220829
  Transmission Date: 20221027
  Serious: Yes (Other)
  Sender: FDA-Public Use
  Company Number: ES-PFIZER INC-2021532302

PATIENT
  Age: 58 Year
  Sex: Female

DRUGS (14)
  1. SOMAVERT [Suspect]
     Active Substance: PEGVISOMANT
     Dosage: 20 MG, DAILY
     Route: 058
     Dates: start: 20151210
  2. FLUTICASONE FUROATE [Concomitant]
     Active Substance: FLUTICASONE FUROATE
     Indication: Sinusitis
     Dosage: 1 DF, 2X/DAY
  3. ACETAMINOPHEN [Concomitant]
     Active Substance: ACETAMINOPHEN
     Indication: Pain
     Dosage: 1 DF, 1X/DAY, DINNER
  4. LEVOTHYROXINE [Concomitant]
     Active Substance: LEVOTHYROXINE
     Indication: Thyroid mass
     Dosage: 1 DF, 1X/DAY
  5. LORAZEPAM [Concomitant]
     Active Substance: LORAZEPAM
     Dosage: 1 DF, 1X/DAY
  6. MINURIN FLAS [Concomitant]
     Indication: Micturition disorder
     Dosage: 1 DF, 3X/DAY
  7. NEURONTIN [Concomitant]
     Active Substance: GABAPENTIN
     Dosage: 300 MG, 1X/DAY
  8. OMEPRAZOLE [Concomitant]
     Active Substance: OMEPRAZOLE
     Indication: Gastric disorder
     Dosage: 20 MG, 1X/DAY
  9. OSVICAL [Concomitant]
     Indication: Bone disorder
     Dosage: 1 DF, 1X/DAY
  10. QUETIAPINE [Concomitant]
     Active Substance: QUETIAPINE
     Dosage: UNK, 1X/DAY
  11. TIMOLOL MALEATE [Concomitant]
     Active Substance: TIMOLOL MALEATE
     Indication: Intraocular pressure increased
     Dosage: 1 DF, 1X/DAY, MORNING
  12. TRAMADOL [Concomitant]
     Active Substance: TRAMADOL
     Indication: Pain
     Dosage: 1 DF, 2X/DAY, BREAKFAST, LUNCH
  13. ESCITALOPRAM OXALATE [Concomitant]
     Active Substance: ESCITALOPRAM OXALATE
     Dosage: 1 DF, 1X/DAY, IN THE MORNING
  14. TRAVATAN [Concomitant]
     Active Substance: TRAVOPROST
     Indication: Intraocular pressure increased
     Dosage: 1 DROP, 1X/DAY, NIGHT

REACTIONS (8)
  - Neoplasm progression [Recovering/Resolving]
  - Weight increased [Not Recovered/Not Resolved]
  - Gait disturbance [Recovering/Resolving]
  - Pain [Not Recovered/Not Resolved]
  - Mobility decreased [Unknown]
  - Stress [Unknown]
  - Incorrect dose administered [Unknown]
  - Device issue [Unknown]
